FAERS Safety Report 8816624 (Version 1)
Quarter: 2012Q4

REPORT INFORMATION
  Report Type: Spontaneous
  Country: US (occurrence: None)
  Receive Date: 20121001
  Receipt Date: 20121001
  Transmission Date: 20130627
  Serious: Yes (Hospitalization)
  Sender: FDA-Public Use
  Company Number: None

PATIENT
  Age: 43 Year
  Sex: Female
  Weight: 81.65 kg

DRUGS (1)
  1. COPPER MIRENA [Suspect]
     Indication: CONTRACEPTION

REACTIONS (5)
  - Haemorrhage [None]
  - Dysmenorrhoea [None]
  - Device dislocation [None]
  - Headache [None]
  - Abdominal pain [None]
